FAERS Safety Report 17780982 (Version 1)
Quarter: 2020Q2

REPORT INFORMATION
  Report Type: Spontaneous
  Country: US (occurrence: US)
  Receive Date: 20200513
  Receipt Date: 20200513
  Transmission Date: 20200714
  Serious: No
  Sender: FDA-Public Use
  Company Number: US-AMGEN-USASP2020074921

PATIENT
  Age: 83 Year
  Sex: Female

DRUGS (5)
  1. VITAMIN D3 [Concomitant]
     Active Substance: CHOLECALCIFEROL
     Dosage: 800 INTERNATIONAL UNIT, QD
  2. VITAMIN C [Concomitant]
     Active Substance: ASCORBIC ACID
     Dosage: 500 MILLIGRAM, QD
  3. VITAMIN B-COMPLEX [Concomitant]
     Active Substance: DEXPANTHENOL\NIACINAMIDE\PYRIDOXINE HYDROCHLORIDE\RIBOFLAVIN 5^-PHOSPHATE SODIUM\THIAMINE HYDROCHLORIDE
     Dosage: UNK, QD
  4. PROLIA [Suspect]
     Active Substance: DENOSUMAB
     Indication: OSTEOPOROSIS POSTMENOPAUSAL
     Dosage: 60 MILLIGRAM
     Route: 065
     Dates: start: 2018
  5. CALCIUM [Concomitant]
     Active Substance: CALCIUM
     Dosage: 1200 MILLIGRAM

REACTIONS (5)
  - Dental caries [Unknown]
  - Anxiety [Unknown]
  - Musculoskeletal discomfort [Recovered/Resolved]
  - Tooth extraction [Unknown]
  - Respiration abnormal [Unknown]

NARRATIVE: CASE EVENT DATE: 2020
